FAERS Safety Report 10570052 (Version 1)
Quarter: 2014Q4

REPORT INFORMATION
  Report Type: Spontaneous
  Country: US (occurrence: None)
  Receive Date: 20141105
  Receipt Date: 20141105
  Transmission Date: 20150529
  Serious: Yes (Hospitalization)
  Sender: FDA-Public Use
  Company Number: 2014-003208

PATIENT
  Age: 22 Year
  Sex: Female

DRUGS (7)
  1. DELZICOL [Suspect]
     Active Substance: MESALAMINE
     Indication: COLITIS ULCERATIVE
     Dosage: 3 CAPSULES
     Route: 048
     Dates: start: 201306
  2. STRATTERA (ATOMOXETINE HYDROCHLORIDE) [Concomitant]
  3. PROZAC [Concomitant]
     Active Substance: FLUOXETINE HYDROCHLORIDE
  4. POTASSIUM (POTASSIUM) [Concomitant]
     Active Substance: POTASSIUM
  5. MELATONIN (MELATONIN) [Concomitant]
     Active Substance: MELATONIN
  6. LAMICTAL [Concomitant]
     Active Substance: LAMOTRIGINE
  7. MULTIVIT (VITAMINS NOS) [Concomitant]

REACTIONS (5)
  - Cryptosporidiosis infection [None]
  - Clostridium difficile infection [None]
  - Medication residue present [None]
  - Skin infection [None]
  - Colitis ulcerative [None]

NARRATIVE: CASE EVENT DATE: 2013
